FAERS Safety Report 5030854-X (Version None)
Quarter: 2006Q2

REPORT INFORMATION
  Report Type: 
  Country: None (occurrence: None)
  Receive Date: 20060619
  Receipt Date: 20060612
  Transmission Date: 20061013
  Serious: Yes (Hospitalization)
  Sender: FDA-Public Use
  Company Number: E2090-00022-SPO-JP

PATIENT
  Age: 31 Year
  Sex: Female

DRUGS (2)
  1. ZONISAMIDE [Suspect]
     Indication: EPILEPSY
     Dosage: 200 MG, 2 IN 1 D, ORAL
     Route: 048
     Dates: start: 20050318, end: 20050319
  2. PHENYTOIN [Suspect]
     Indication: EPILEPSY
     Dosage: 200 MG, 2 IN 1 D, ORAL
     Route: 048
     Dates: start: 20050228, end: 20050317

REACTIONS (3)
  - RASH PUSTULAR [None]
  - STEVENS-JOHNSON SYNDROME [None]
  - WHITE BLOOD CELL COUNT DECREASED [None]
